FAERS Safety Report 5706059-3 (Version None)
Quarter: 2008Q2

REPORT INFORMATION
  Report Type: 
  Country: None (occurrence: None)
  Receive Date: 20080415
  Receipt Date: 20080403
  Transmission Date: 20081010
  Serious: Yes (Hospitalization)
  Sender: FDA-Public Use
  Company Number: PFIZER INC-2008005108

PATIENT
  Sex: Male
  Weight: 54.5 kg

DRUGS (9)
  1. SUTENT [Suspect]
     Indication: MALIGNANT FIBROUS HISTIOCYTOMA
     Route: 048
     Dates: start: 20071207, end: 20071216
  2. PREDNISONE [Concomitant]
     Route: 048
  3. ANDROGEL [Concomitant]
     Route: 061
  4. ALPHAGAN [Concomitant]
     Dosage: FREQ:TID
     Route: 047
     Dates: start: 19980101
  5. XALATAN [Concomitant]
     Dosage: FREQ:HS
     Route: 047
     Dates: start: 19980101
  6. COSOPT [Concomitant]
     Dosage: FREQ:BID
     Route: 047
     Dates: start: 19980101
  7. BROMFENAC [Concomitant]
     Dosage: FREQ:BID
     Route: 047
     Dates: start: 19980101
  8. VITAMIN B-12 [Concomitant]
     Dosage: FREQ:EVERY 2 WKS
     Route: 030
     Dates: start: 20060101
  9. SYNTHROID [Concomitant]
     Route: 048

REACTIONS (1)
  - GASTROENTERITIS [None]
